FAERS Safety Report 5238439-7 (Version None)
Quarter: 2007Q1

REPORT INFORMATION
  Report Type: 
  Country: None (occurrence: None)
  Receive Date: 20070215
  Receipt Date: 20070206
  Transmission Date: 20070707
  Serious: Yes (Other)
  Sender: FDA-Public Use
  Company Number: NLWYE538406FEB07

PATIENT
  Sex: Male

DRUGS (2)
  1. EFFEXOR XR [Suspect]
     Indication: DEPRESSION
     Dates: start: 20061201
  2. PIPAMPERONE [Concomitant]
     Dates: start: 20061201

REACTIONS (3)
  - PRESYNCOPE [None]
  - TUNNEL VISION [None]
  - VISUAL FIELD DEFECT [None]
